FAERS Safety Report 8923039 (Version 1)
Quarter: 2012Q4

REPORT INFORMATION
  Report Type: Spontaneous
  Country: US (occurrence: None)
  Receive Date: 20121115
  Receipt Date: 20121115
  Transmission Date: 20130627
  Serious: Yes (Other)
  Sender: FDA-Public Use
  Company Number: None

PATIENT
  Age: 62 Year
  Sex: Female
  Weight: 81.65 kg

DRUGS (1)
  1. TOVIAZ [Suspect]
     Indication: OVERACTIVE BLADDER
     Dosage: 1 day po
     Route: 048
     Dates: start: 20121010, end: 20121102

REACTIONS (5)
  - Insomnia [None]
  - Mood swings [None]
  - Emotional distress [None]
  - Dizziness [None]
  - Economic problem [None]
